FAERS Safety Report 9620144 (Version 4)
Quarter: 2013Q4

REPORT INFORMATION
  Report Type: Spontaneous
  Country: GB (occurrence: GB)
  Receive Date: 20131014
  Receipt Date: 20131212
  Transmission Date: 20140711
  Serious: Yes (Other)
  Sender: FDA-Public Use
  Company Number: GB-B.I. PHARMACEUTICALS,INC./RIDGEFIELD-2013-UK-01400UK

PATIENT
  Age: 47 Year
  Sex: Female
  Weight: 78 kg

DRUGS (5)
  1. CARBOCISTEINE [Concomitant]
     Route: 048
  2. SERETIDE ACCUHALER [Concomitant]
     Dosage: 1000 MG
  3. PHYLLOCONTIN [Concomitant]
     Dosage: 225X2 BD
     Route: 048
  4. SALBUTAMOL [Concomitant]
     Dosage: ROUTE: INH
  5. SPIRIVA [Suspect]
     Indication: CHRONIC OBSTRUCTIVE PULMONARY DISEASE
     Dosage: 18 MCG
     Dates: start: 2005, end: 20130708

REACTIONS (2)
  - Foreign body [Recovered/Resolved]
  - Product quality issue [Unknown]
